FAERS Safety Report 4580367-4 (Version None)
Quarter: 2005Q1

REPORT INFORMATION
  Report Type: 
  Country: None (occurrence: None)
  Receive Date: 20050127
  Receipt Date: 20041029
  Transmission Date: 20050727
  Serious: No
  Sender: FDA-Public Use
  Company Number: USA040772862

PATIENT
  Age: 4 Year
  Sex: Male
  Weight: 17 kg

DRUGS (2)
  1. STRATTERA [Suspect]
     Indication: ATTENTION DEFICIT/HYPERACTIVITY DISORDER
     Dosage: 30 MG DAY
     Dates: start: 20031101
  2. ZOLOFT [Concomitant]

REACTIONS (3)
  - CONTUSION [None]
  - DYSGEUSIA [None]
  - PRESCRIBED OVERDOSE [None]
